FAERS Safety Report 5809013-6 (Version None)
Quarter: 2008Q3

REPORT INFORMATION
  Report Type: 
  Country: None (occurrence: None)
  Receive Date: 20080710
  Receipt Date: 20080710
  Transmission Date: 20090109
  Serious: No
  Sender: FDA-Public Use
  Company Number: None

PATIENT
  Age: 67 Year
  Sex: Male
  Weight: 80.7403 kg

DRUGS (2)
  1. CIPRO [Suspect]
     Indication: PATHOGEN RESISTANCE
     Dosage: DAILY PO
     Route: 048
     Dates: start: 20071212, end: 20080514
  2. CIPRO [Suspect]
     Indication: STAPHYLOCOCCAL INFECTION
     Dosage: DAILY PO
     Route: 048
     Dates: start: 20071212, end: 20080514

REACTIONS (5)
  - JOINT LOCK [None]
  - JOINT STIFFNESS [None]
  - JOINT SWELLING [None]
  - TENDON PAIN [None]
  - UNEVALUABLE EVENT [None]
